FAERS Safety Report 15745606 (Version 3)
Quarter: 2024Q2

REPORT INFORMATION
  Report Type: Spontaneous
  Country: JP (occurrence: JP)
  Receive Date: 20181220
  Receipt Date: 20240418
  Transmission Date: 20240715
  Serious: Yes (Hospitalization, Other)
  Sender: FDA-Public Use
  Company Number: JP-SANIK-2018SA340478AA

PATIENT
  Age: 82 Year
  Sex: Female

DRUGS (1)
  1. PLAVIX [Suspect]
     Active Substance: CLOPIDOGREL BISULFATE
     Indication: Cerebral infarction
     Dosage: REGULAR ORAL INTAKE
     Route: 048

REACTIONS (6)
  - Interstitial lung disease [Recovering/Resolving]
  - Cough [Recovering/Resolving]
  - Dyspnoea exertional [Recovering/Resolving]
  - Pneumonia [Recovering/Resolving]
  - Angiogram pulmonary abnormal [Recovering/Resolving]
  - KL-6 increased [Recovering/Resolving]
